FAERS Safety Report 9418099 (Version 1)
Quarter: 2013Q3

REPORT INFORMATION
  Report Type: Spontaneous
  Country: FR (occurrence: FR)
  Receive Date: 20130724
  Receipt Date: 20130724
  Transmission Date: 20140515
  Serious: Yes (Hospitalization)
  Sender: FDA-Public Use
  Company Number: FR-B.I. PHARMACEUTICALS,INC./RIDGEFIELD-2013-FF-00564FF

PATIENT
  Age: 8 Month
  Sex: Female

DRUGS (4)
  1. CATAPRESSAN [Suspect]
     Dosage: 100 MCG
     Route: 042
     Dates: start: 20130112, end: 20130115
  2. SALBUTAMOL [Suspect]
     Dosage: 10 MCG
     Route: 042
     Dates: start: 20130110
  3. SOLUPRED [Suspect]
     Dosage: 10 MG
     Route: 048
     Dates: start: 20130108, end: 20130115
  4. ATROVENT [Suspect]
     Dosage: 0.25 MG/1 ML
     Route: 055
     Dates: start: 20130108, end: 20130115

REACTIONS (3)
  - Tachycardia [Recovered/Resolved]
  - Depressed level of consciousness [Recovered/Resolved]
  - Tremor [Recovered/Resolved]
